FAERS Safety Report 19742690 (Version 3)
Quarter: 2021Q4

REPORT INFORMATION
  Report Type: Spontaneous
  Country: US (occurrence: US)
  Receive Date: 20210825
  Receipt Date: 20211028
  Transmission Date: 20220303
  Serious: Yes (Life-Threatening, Hospitalization, Other)
  Sender: FDA-Public Use
  Company Number: US-SA-SAC20210820000816

PATIENT
  Age: 61 Year
  Sex: Male

DRUGS (21)
  1. DUPIXENT [Suspect]
     Active Substance: DUPILUMAB
     Dosage: 150 MG, QOW
     Route: 058
     Dates: start: 20201021, end: 2020
  2. ASPIRIN [Concomitant]
     Active Substance: ASPIRIN
     Dosage: 81 MG, QD
     Route: 048
  3. BENAZEPRIL [Concomitant]
     Active Substance: BENAZEPRIL HYDROCHLORIDE
     Indication: Hypertension
     Dosage: 1 DF, QD (IN THE MORNING)
     Route: 048
  4. BENAZEPRIL [Concomitant]
     Active Substance: BENAZEPRIL HYDROCHLORIDE
     Dosage: 0.5 DF (TABLET), HS (AT BEDTIME)
     Route: 048
  5. DESONIDE [Concomitant]
     Active Substance: DESONIDE
     Dosage: 1 DF, TID (1 APPLICATION SPARINGLY TO AFFECTED AREA, 2-3 TIMES DAILY)
     Route: 061
     Dates: start: 20201222
  6. JARDIANCE [Concomitant]
     Active Substance: EMPAGLIFLOZIN
     Indication: Type 2 diabetes mellitus
     Dosage: 10 MG, QD (BREAKFAST)
     Route: 048
     Dates: start: 20200510
  7. EZETIMIBE [Concomitant]
     Active Substance: EZETIMIBE
     Indication: Hypertension
     Dosage: 1 DF, HS
     Route: 048
     Dates: start: 20201021
  8. EZETIMIBE [Concomitant]
     Active Substance: EZETIMIBE
     Indication: Dyslipidaemia
  9. EZETIMIBE [Concomitant]
     Active Substance: EZETIMIBE
     Indication: Angioplasty
  10. METOPROLOL SUCCINATE [Concomitant]
     Active Substance: METOPROLOL SUCCINATE
     Indication: Hypertension
     Dosage: 1 DF, QD
     Route: 048
  11. ADALAT CC [Concomitant]
     Active Substance: NIFEDIPINE
     Dosage: 60 MG, QD
     Route: 048
  12. ROSUVASTATIN [Concomitant]
     Active Substance: ROSUVASTATIN
     Indication: Cardiomyopathy
     Dosage: 1 DF, HS
     Route: 048
  13. OZEMPIC [Concomitant]
     Active Substance: SEMAGLUTIDE
     Indication: Dyslipidaemia
     Dosage: 0.5 MG, QW
     Route: 058
     Dates: start: 20200814
  14. DILAUDID [Concomitant]
     Active Substance: HYDROMORPHONE HYDROCHLORIDE
     Indication: Pain
     Dosage: 2 DF, Q6H AS NEEDED (FOR PAIN MODERATE/SEVERE. ACUTE PAIN EXEMPTION)
     Route: 048
  15. FLEXERIL [Concomitant]
     Active Substance: CYCLOBENZAPRINE HYDROCHLORIDE
     Indication: Muscle spasms
     Dosage: 1 DF, TID (AS NEEDED)
     Route: 048
     Dates: start: 20210629, end: 20210705
  16. NIFEDIPINE [Concomitant]
     Active Substance: NIFEDIPINE
     Indication: Supplementation therapy
     Dosage: 1 DF, QD (AS DIRECTED)
     Route: 048
  17. HYDROCHLOROTHIAZIDE\TRIAMTERENE [Concomitant]
     Active Substance: HYDROCHLOROTHIAZIDE\TRIAMTERENE
     Indication: Hypertension
     Dosage: 1 DF, QD
     Route: 048
  18. CARBAMAZEPINE [Concomitant]
     Active Substance: CARBAMAZEPINE
     Dosage: 4 DF, QD (2 CHEWABLE TABLETS AM AND 2 CHEWABLE TABLETS AT PM)
     Route: 048
     Dates: start: 20201216
  19. CITALOPRAM HYDROBROMIDE [Concomitant]
     Active Substance: CITALOPRAM HYDROBROMIDE
     Dosage: 1 DF, QD
     Route: 048
     Dates: start: 20200804
  20. METOPROLOL TARTRATE [Concomitant]
     Active Substance: METOPROLOL TARTRATE
  21. LIBENZAPRIL [Concomitant]
     Active Substance: LIBENZAPRIL

REACTIONS (13)
  - Hypertension [Unknown]
  - Type 2 diabetes mellitus [Unknown]
  - Retinal vascular occlusion [Recovering/Resolving]
  - Head injury [Unknown]
  - Tendon rupture [Unknown]
  - Arthralgia [Unknown]
  - Cartilage injury [Unknown]
  - Arthropathy [Unknown]
  - Fall [Unknown]
  - Rotator cuff syndrome [Unknown]
  - Accident at home [Unknown]
  - Visual impairment [Unknown]
  - Incorrect dose administered [Unknown]

NARRATIVE: CASE EVENT DATE: 20201021
